FAERS Safety Report 6994042-X (Version None)
Quarter: 2010Q3

REPORT INFORMATION
  Report Type: 
  Country: None (occurrence: None)
  Receive Date: 20100917
  Receipt Date: 20070625
  Transmission Date: 20110219
  Serious: Yes (Hospitalization)
  Sender: FDA-Public Use
  Company Number: US-ASTRAZENECA-2006UW21780

PATIENT
  Sex: Female
  Weight: 43.1 kg

DRUGS (5)
  1. SEROQUEL [Suspect]
     Indication: DEPRESSION
     Route: 048
     Dates: start: 20051101
  2. SEROQUEL [Suspect]
     Dosage: 100 MG - 400 MG
     Route: 048
     Dates: start: 20051218
  3. PROZAC [Concomitant]
     Dates: start: 20060617
  4. ELAVIL [Concomitant]
     Dates: start: 20060617
  5. ZOLOFT [Concomitant]
     Route: 048
     Dates: start: 20051007

REACTIONS (2)
  - DIABETES MELLITUS [None]
  - HYPERGLYCAEMIA [None]
